APPROVED DRUG PRODUCT: METFORMIN HYDROCHLORIDE
Active Ingredient: METFORMIN HYDROCHLORIDE
Strength: 500MG/5ML
Dosage Form/Route: SOLUTION;ORAL
Application: A212677 | Product #001 | TE Code: AB
Applicant: VISTAPHARM LLC
Approved: Aug 19, 2022 | RLD: No | RS: No | Type: RX